FAERS Safety Report 12242388 (Version 2)
Quarter: 2016Q2

REPORT INFORMATION
  Report Type: Spontaneous
  Country: US (occurrence: US)
  Receive Date: 20160406
  Receipt Date: 20160523
  Transmission Date: 20160815
  Serious: Yes (Hospitalization)
  Sender: FDA-Public Use
  Company Number: US-JNJFOC-20160325857

PATIENT
  Age: 68 Year
  Sex: Female
  Weight: 95.26 kg

DRUGS (2)
  1. SIMPONI [Suspect]
     Active Substance: GOLIMUMAB
     Indication: RHEUMATOID ARTHRITIS
     Dosage: ABOUT 3 YEARS AGO
     Route: 058
     Dates: start: 2013, end: 201603
  2. SIMPONI [Suspect]
     Active Substance: GOLIMUMAB
     Indication: RHEUMATOID ARTHRITIS
     Route: 058

REACTIONS (8)
  - Accidental exposure to product [Recovered/Resolved]
  - Sinusitis [Unknown]
  - Nephrolithiasis [Not Recovered/Not Resolved]
  - Underdose [Recovered/Resolved]
  - Pain [Unknown]
  - Device malfunction [Unknown]
  - Injection site bruising [Unknown]
  - Bronchitis [Unknown]

NARRATIVE: CASE EVENT DATE: 20151225
